FAERS Safety Report 10495263 (Version 1)
Quarter: 2014Q4

REPORT INFORMATION
  Report Type: Spontaneous
  Country: US (occurrence: None)
  Receive Date: 20141001
  Receipt Date: 20141001
  Transmission Date: 20150528
  Serious: Yes (Other)
  Sender: FDA-Public Use
  Company Number: 2014PIR00013

PATIENT
  Age: 64 Year
  Sex: Female

DRUGS (3)
  1. PRILOCAINE [Suspect]
     Active Substance: PRILOCAINE
     Indication: ANAESTHESIA
  2. ARTICAINE [Suspect]
     Active Substance: ARTICAINE
     Indication: ANAESTHESIA
  3. ARTICAINE [Suspect]
     Active Substance: ARTICAINE

REACTIONS (5)
  - Dysarthria [None]
  - XIIth nerve injury [None]
  - Vth nerve injury [None]
  - Hypoaesthesia oral [None]
  - Tongue atrophy [None]
